FAERS Safety Report 8730354 (Version 11)
Quarter: 2013Q3

REPORT INFORMATION
  Report Type: Report from Study
  Country: CA (occurrence: CA)
  Receive Date: 20120817
  Receipt Date: 20130802
  Transmission Date: 20140515
  Serious: Yes (Other)
  Sender: FDA-Public Use
  Company Number: CA-ROCHE-1102638

PATIENT
  Age: 71 Year
  Sex: Female
  Weight: 71 kg

DRUGS (18)
  1. ACTEMRA [Suspect]
     Indication: RHEUMATOID ARTHRITIS
     Dosage: LAST INFUSION ON 18/JUL/2012
     Route: 042
     Dates: start: 20120523
  2. ACTEMRA [Suspect]
     Route: 042
     Dates: start: 20130430
  3. SYNTHROID [Concomitant]
  4. TEVA-PANTOPRAZOLE [Concomitant]
  5. MYFORTIC [Concomitant]
  6. ATACAND [Concomitant]
  7. CARBOCAL D [Concomitant]
  8. FOLIC ACID [Concomitant]
  9. CESAMET [Concomitant]
  10. APO-CLONAZEPAM [Concomitant]
  11. APO-CYCLOBENZAPRINE [Concomitant]
  12. DEMEROL [Concomitant]
  13. STATEX (CANADA) [Concomitant]
  14. CALCITE [Concomitant]
  15. ELAVIL [Concomitant]
  16. LEUCOVORIN [Concomitant]
  17. ACTONEL [Concomitant]
  18. BUTRANS [Concomitant]

REACTIONS (13)
  - Abasia [Not Recovered/Not Resolved]
  - Speech disorder [Not Recovered/Not Resolved]
  - Dysphagia [Not Recovered/Not Resolved]
  - Cerebrovascular accident [Not Recovered/Not Resolved]
  - Pain [Not Recovered/Not Resolved]
  - Mobility decreased [Not Recovered/Not Resolved]
  - Arthralgia [Recovering/Resolving]
  - Gait disturbance [Not Recovered/Not Resolved]
  - Weight increased [Not Recovered/Not Resolved]
  - Musculoskeletal pain [Recovered/Resolved]
  - Headache [Recovered/Resolved]
  - Blood pressure increased [Not Recovered/Not Resolved]
  - Productive cough [Not Recovered/Not Resolved]
